FAERS Safety Report 24946800 (Version 1)
Quarter: 2025Q1

REPORT INFORMATION
  Report Type: Spontaneous
  Country: NL (occurrence: NL)
  Receive Date: 20250210
  Receipt Date: 20250210
  Transmission Date: 20250409
  Serious: Yes (Other)
  Sender: Haleon PLC
  Company Number: None

PATIENT
  Age: 25 Year
  Sex: Female
  Weight: 53 kg

DRUGS (17)
  1. IBUPROFEN [Suspect]
     Active Substance: IBUPROFEN
     Indication: Pain
     Route: 048
     Dates: end: 20241221
  2. IBUPROFEN [Suspect]
     Active Substance: IBUPROFEN
     Route: 048
     Dates: start: 20240118
  3. MACROGOL POEDER V DRANK 10G / Brand name not specified [Concomitant]
     Indication: Product used for unknown indication
     Route: 048
  4. FORMOTEROL AEROSOL 12UG/DO / Brand name not specified [Concomitant]
     Indication: Product used for unknown indication
  5. MORFINE TABLET MGA  10MG (SULFAAT) / MS CONTIN TABLET MGA  10MG [Concomitant]
     Indication: Product used for unknown indication
     Dates: end: 20241001
  6. MENINGOKOKKENVACCIN B INJSUSP (BEXSERO) / Brand name not specified [Concomitant]
     Indication: Product used for unknown indication
  7. SALBUTAMOL VERNEVELVLST 1MG/ML / VENTOLIN   2,5 INHVLST 1MG/ML NEBU... [Concomitant]
     Indication: Product used for unknown indication
  8. ALBUTEROL [Concomitant]
     Active Substance: ALBUTEROL
     Indication: Product used for unknown indication
  9. CICLESONIDE AEROSOL 160UG/DO / Brand name not specified [Concomitant]
     Indication: Product used for unknown indication
  10. GELEKOORTSVACCIN INJECTIEPOEDER 1000IE / STAMARIL INJPDR FLACON + S... [Concomitant]
     Indication: Product used for unknown indication
  11. DESLORATADINE TABLET 5MG / Brand name not specified [Concomitant]
     Indication: Product used for unknown indication
     Route: 048
  12. BUPRENORFINE PLEISTER 5UG/UUR / BUTRANS PLEISTER TRANSDERMAAL  5MCG... [Concomitant]
     Indication: Product used for unknown indication
     Route: 062
  13. PREDNISONE [Concomitant]
     Active Substance: PREDNISONE
     Indication: Product used for unknown indication
     Route: 048
  14. OMEPRAZOLE [Concomitant]
     Active Substance: OMEPRAZOLE
     Indication: Product used for unknown indication
     Route: 048
  15. AZITROMYCINE TABLET 250MG / Brand name not specified [Concomitant]
     Indication: Product used for unknown indication
     Route: 048
  16. PARACETAMOL TABLET  500MG / Brand name not specified [Concomitant]
     Indication: Product used for unknown indication
     Route: 048
  17. AZELASTINE/FLUTICASON NEUSSPRAY 137/50UG/DO / DYMISTA NEUSSPRAY 137... [Concomitant]
     Indication: Product used for unknown indication
     Route: 045

REACTIONS (1)
  - Aplastic anaemia [Unknown]
